FAERS Safety Report 6423863-7 (Version None)
Quarter: 2009Q4

REPORT INFORMATION
  Report Type: 
  Country: None (occurrence: None)
  Receive Date: 20091028
  Receipt Date: 20091013
  Transmission Date: 20100525
  Serious: Yes (Hospitalization)
  Sender: FDA-Public Use
  Company Number: DSJ-2009-07864

PATIENT
  Age: 66 Year
  Sex: Male

DRUGS (5)
  1. OLMESARTAN MEDOXOMIL [Suspect]
     Indication: DRUG USE FOR UNKNOWN INDICATION
     Dates: end: 20090609
  2. LOXONIN(LOXOPROFEN SODIUM)(LOXOPROFEN SODIUM) [Suspect]
     Indication: DRUG USE FOR UNKNOWN INDICATION
     Dates: start: 20090608
  3. AMLODIPINE [Concomitant]
  4. ADALAT (NIFEDIPINE) (NIFEDIPINE) [Concomitant]
  5. OMEPRAL (OMEPRAZOLE) (OMEPRAZOLE) [Concomitant]

REACTIONS (2)
  - FACE OEDEMA [None]
  - FLUSHING [None]
